FAERS Safety Report 15411125 (Version 5)
Quarter: 2019Q1

REPORT INFORMATION
  Report Type: Report from Study
  Country: None (occurrence: US)
  Receive Date: 20180921
  Receipt Date: 20190302
  Transmission Date: 20190417
  Serious: Yes (Hospitalization)
  Sender: FDA-Public Use
  Company Number: US-ABBVIE-17K-163-2047888-00

PATIENT
  Age: 79 Year
  Sex: Female

DRUGS (2)
  1. LEFLUNOMIDE. [Suspect]
     Active Substance: LEFLUNOMIDE
     Indication: PRODUCT USED FOR UNKNOWN INDICATION
     Route: 065
  2. HUMIRA [Suspect]
     Active Substance: ADALIMUMAB
     Indication: RHEUMATOID ARTHRITIS
     Route: 058
     Dates: start: 2015, end: 201812

REACTIONS (25)
  - Dyspnoea [Recovering/Resolving]
  - Balance disorder [Unknown]
  - Pain in extremity [Recovered/Resolved]
  - Drug hypersensitivity [Recovering/Resolving]
  - Malaise [Recovering/Resolving]
  - Asthenia [Recovering/Resolving]
  - Onychoclasis [Unknown]
  - Contusion [Unknown]
  - Fall [Recovered/Resolved]
  - Drug effect incomplete [Not Recovered/Not Resolved]
  - Influenza [Recovering/Resolving]
  - Skin injury [Unknown]
  - Arthralgia [Unknown]
  - Joint swelling [Unknown]
  - Productive cough [Not Recovered/Not Resolved]
  - Arthralgia [Recovered/Resolved]
  - Psoriasis [Recovering/Resolving]
  - Pain in extremity [Recovered/Resolved]
  - Pain in extremity [Unknown]
  - Peripheral swelling [Unknown]
  - Mobility decreased [Recovering/Resolving]
  - Hypertension [Unknown]
  - Scratch [Recovered/Resolved]
  - Fall [Recovering/Resolving]
  - Back pain [Not Recovered/Not Resolved]

NARRATIVE: CASE EVENT DATE: 201704
